FAERS Safety Report 19100153 (Version 1)
Quarter: 2021Q2

REPORT INFORMATION
  Report Type: Spontaneous
  Country: US (occurrence: US)
  Receive Date: 20210407
  Receipt Date: 20210407
  Transmission Date: 20210717
  Serious: No
  Sender: FDA-Public Use
  Company Number: US-SA-POMP-1001660

PATIENT
  Age: 25 Year
  Sex: Male
  Weight: 85 kg

DRUGS (4)
  1. PARACETAMOL [Concomitant]
     Active Substance: ACETAMINOPHEN
     Indication: PREMEDICATION
     Dosage: UNK
  2. ALGLUCOSIDASE ALFA [Suspect]
     Active Substance: ALGLUCOSIDASE ALFA
     Indication: GLYCOGEN STORAGE DISEASE TYPE II
     Dosage: UNK
     Route: 041
     Dates: start: 2007, end: 200809
  3. ALGLUCOSIDASE ALFA [Suspect]
     Active Substance: ALGLUCOSIDASE ALFA
     Dosage: 20 MG/KG,QOW
     Route: 041
     Dates: start: 20110714
  4. DIPHENHYDRAMINE HYDROCHLORIDE. [Concomitant]
     Active Substance: DIPHENHYDRAMINE HYDROCHLORIDE
     Indication: PREMEDICATION
     Dosage: UNK

REACTIONS (10)
  - Speech disorder [Unknown]
  - Fall [Unknown]
  - Throat tightness [Unknown]
  - Oropharyngeal pain [Unknown]
  - Dizziness [Unknown]
  - Fatigue [Unknown]
  - Dysphagia [Unknown]
  - Feeling hot [Unknown]
  - Dyspnoea [Recovering/Resolving]
  - Flushing [Unknown]

NARRATIVE: CASE EVENT DATE: 20110714
